FAERS Safety Report 6059649-5 (Version None)
Quarter: 2009Q1

REPORT INFORMATION
  Report Type: 
  Country: None (occurrence: None)
  Receive Date: 20090130
  Receipt Date: 20090122
  Transmission Date: 20090719
  Serious: Yes (Life-Threatening, Hospitalization)
  Sender: FDA-Public Use
  Company Number: GB-BAUSCH-2009BL000307

PATIENT
  Age: 44 Year
  Sex: Female

DRUGS (13)
  1. DEXAMETHASONE [Suspect]
     Indication: DRUG USE FOR UNKNOWN INDICATION
  2. CITALOPRAM HYDROBROMIDE [Suspect]
     Indication: DRUG USE FOR UNKNOWN INDICATION
  3. METHYLENE BLUE [Suspect]
     Indication: PREOPERATIVE CARE
  4. MORPHINE [Suspect]
  5. PROPOFOL [Suspect]
     Indication: SEDATION
  6. REMIFENTANIL [Suspect]
     Indication: DRUG USE FOR UNKNOWN INDICATION
  7. ROCURONIUM BROMIDE [Suspect]
     Indication: DRUG USE FOR UNKNOWN INDICATION
  8. ASPIRIN [Concomitant]
     Indication: DRUG USE FOR UNKNOWN INDICATION
  9. ATENOLOL [Concomitant]
     Indication: DRUG USE FOR UNKNOWN INDICATION
  10. BENDROFLUMETHIAZIDE [Concomitant]
     Indication: DRUG USE FOR UNKNOWN INDICATION
  11. FELODIPINE [Concomitant]
     Indication: DRUG USE FOR UNKNOWN INDICATION
  12. ISOSORBIDE MONONITRATE [Concomitant]
     Indication: DRUG USE FOR UNKNOWN INDICATION
  13. SIMVASTATIN [Concomitant]
     Indication: DRUG USE FOR UNKNOWN INDICATION

REACTIONS (1)
  - SEROTONIN SYNDROME [None]
